FAERS Safety Report 18006971 (Version 1)
Quarter: 2020Q3

REPORT INFORMATION
  Report Type: Spontaneous
  Country: US (occurrence: US)
  Receive Date: 20200710
  Receipt Date: 20200710
  Transmission Date: 20201103
  Serious: No
  Sender: FDA-Public Use
  Company Number: None

PATIENT
  Age: 68 Year
  Sex: Male
  Weight: 111.3 kg

DRUGS (3)
  1. DEXAMETHASONE 6MG PO DAILY [Suspect]
     Active Substance: DEXAMETHASONE
     Dates: start: 20200703, end: 20200708
  2. TOCILIZUMAB. [Suspect]
     Active Substance: TOCILIZUMAB
     Indication: COVID-19 PNEUMONIA
     Dosage: ?          OTHER FREQUENCY:ONCE;?
     Route: 040
     Dates: start: 20200703, end: 20200703
  3. REMDESIVIR. [Suspect]
     Active Substance: REMDESIVIR

REACTIONS (4)
  - Leukocytosis [None]
  - Peritonitis [None]
  - Pneumoperitoneum [None]
  - Abdominal abscess [None]

NARRATIVE: CASE EVENT DATE: 20200709
